FAERS Safety Report 4376699-5 (Version None)
Quarter: 2004Q2

REPORT INFORMATION
  Report Type: 
  Country: None (occurrence: None)
  Receive Date: 20040608
  Receipt Date: 20040524
  Transmission Date: 20050107
  Serious: Yes (Hospitalization, Other)
  Sender: FDA-Public Use
  Company Number: US-JNJFOC-20040203047

PATIENT
  Age: 84 Year
  Sex: Male
  Weight: 58.9676 kg

DRUGS (25)
  1. REMICADE [Suspect]
     Indication: CROHN'S DISEASE
     Dosage: INTRAVENOUS
     Route: 042
     Dates: start: 20040112, end: 20040112
  2. REMICADE [Suspect]
     Indication: CROHN'S DISEASE
     Dosage: INTRAVENOUS
     Route: 042
     Dates: start: 20000101
  3. REMICADE [Suspect]
     Indication: CROHN'S DISEASE
     Dosage: INTRAVENOUS
     Route: 042
     Dates: start: 20030501
  4. REMICADE [Suspect]
     Indication: CROHN'S DISEASE
     Dosage: INTRAVENOUS
     Route: 042
     Dates: start: 20030601
  5. REMICADE [Suspect]
     Indication: CROHN'S DISEASE
     Dosage: INTRAVENOUS
     Route: 042
     Dates: start: 20030701
  6. REMICADE [Suspect]
     Indication: CROHN'S DISEASE
     Dosage: INTRAVENOUS
     Route: 042
     Dates: start: 20030915
  7. REMICADE [Suspect]
     Indication: CROHN'S DISEASE
     Dosage: INTRAVENOUS
     Route: 042
     Dates: start: 20031110
  8. PARAGORIC (LIQUID) PAREGORIC [Concomitant]
  9. NORCO (TABLETS) VICODIN [Concomitant]
  10. ULTRACEPT TRAMADOL/APAP [Concomitant]
  11. COZAAR [Concomitant]
  12. LASIX [Concomitant]
  13. K-DUR 10 [Concomitant]
  14. FLOMAX [Concomitant]
  15. REMERON [Concomitant]
  16. MULTIVITAMIN [Concomitant]
  17. LOMOTIL (LOMOTIL) TABLETS [Concomitant]
  18. HYDROCORTISONE (HYDROCORTISONE) SUPPOSITORY [Concomitant]
  19. PROMETHAZINE [Concomitant]
  20. ACTONEL [Concomitant]
  21. VITAMIN B COMPLEX (B-KOMPLEX ^LECIVA^) [Concomitant]
  22. VITRAMIN B 6 (PYRIDOXINE HYDROCHLORIDE) [Concomitant]
  23. GLUTAMINE (PROTEIN SUPPLEMENTS) [Concomitant]
  24. TOPROL-XL [Concomitant]
  25. ENSURE (ENSURE) [Concomitant]

REACTIONS (30)
  - BLOOD CHLORIDE DECREASED [None]
  - BLOOD PRESSURE DECREASED [None]
  - BLOOD SODIUM DECREASED [None]
  - BRADYPHRENIA [None]
  - CHEST PAIN [None]
  - CHILLS [None]
  - CREATINE PHOSPHOKINASE DECREASED [None]
  - DEHYDRATION [None]
  - DIARRHOEA [None]
  - DYSARTHRIA [None]
  - FEELING ABNORMAL [None]
  - FEELING HOT AND COLD [None]
  - GRAND MAL CONVULSION [None]
  - HAEMATOCRIT DECREASED [None]
  - INFLUENZA LIKE ILLNESS [None]
  - INFUSION RELATED REACTION [None]
  - LOSS OF CONSCIOUSNESS [None]
  - NAUSEA [None]
  - PAIN [None]
  - PALLOR [None]
  - PHARYNGOESOPHAGEAL DIVERTICULUM [None]
  - PLATELET COUNT DECREASED [None]
  - PYREXIA [None]
  - RESPIRATORY RATE INCREASED [None]
  - RESPIRATORY TRACT CONGESTION [None]
  - SYNCOPE [None]
  - SYNCOPE VASOVAGAL [None]
  - TREMOR [None]
  - WHEEZING [None]
  - WHITE BLOOD CELL COUNT DECREASED [None]
